FAERS Safety Report 8961812 (Version 2)
Quarter: 2012Q4

REPORT INFORMATION
  Report Type: 
  Country: JP (occurrence: JP)
  Receive Date: 20121213
  Receipt Date: 20121221
  Transmission Date: 20130627
  Serious: Yes (Other)
  Sender: FDA-Public Use
  Company Number: JP-ELI_LILLY_AND_COMPANY-JP201212000022

PATIENT
  Age: 85 Year
  Sex: Female

DRUGS (3)
  1. FORTEO [Suspect]
     Indication: OSTEOPOROSIS POSTMENOPAUSAL
     Dosage: UNK
     Route: 058
     Dates: start: 20120330
  2. CELECOX [Concomitant]
     Dosage: UNK
     Dates: end: 201210
  3. DERMOSOL [Concomitant]
     Indication: DERMATITIS
     Dosage: UNK
     Route: 062
     Dates: start: 201208

REACTIONS (1)
  - Colon cancer [Unknown]
